FAERS Safety Report 7336609-5 (Version None)
Quarter: 2011Q1

REPORT INFORMATION
  Report Type: 
  Country: None (occurrence: None)
  Receive Date: 20110307
  Receipt Date: 20110221
  Transmission Date: 20110831
  Serious: Yes (Death, Hospitalization)
  Sender: FDA-Public Use
  Company Number: US-BAYER-2011-016823

PATIENT
  Sex: Female

DRUGS (10)
  1. LOVASTATIN [Concomitant]
     Indication: HYPERLIPIDAEMIA
     Dosage: 10MG/QHS
     Route: 048
     Dates: start: 20090101
  2. SPIRONOLACTONE [Concomitant]
     Indication: HYPERLIPIDAEMIA
     Dosage: 25MG/QD
     Route: 048
     Dates: start: 20060101
  3. NOVOLIN 30R [INSULIN HUMAN,INSULIN HUMAN INJECTION, ISOPHANE] [Concomitant]
     Indication: DIABETES MELLITUS
     Dosage: SLIDING SCALE
     Dates: start: 20080301
  4. GABAPENTIN [Concomitant]
     Indication: NEUROPATHY PERIPHERAL
     Dosage: 900MG/TID
     Route: 048
     Dates: start: 20030421
  5. DEXAMETHASONE [Suspect]
     Indication: MULTIPLE MYELOMA
     Dosage: UNK
     Dates: start: 20110125, end: 20110202
  6. LISINOPRIL [Concomitant]
     Indication: HYPERTENSION
     Dosage: DAILY DOSE 10 MG
     Route: 048
     Dates: start: 20090101
  7. OXYCONTIN [Concomitant]
     Indication: BACK PAIN
     Dosage: 80 MG, TID
     Route: 048
     Dates: start: 20050525
  8. ZOSYN [Concomitant]
     Indication: UPPER RESPIRATORY TRACT INFECTION
     Dosage: UNK
     Dates: start: 20110202
  9. MOXIFLOXACIN [Suspect]
     Indication: UPPER RESPIRATORY TRACT INFECTION
     Dosage: UNK
     Dates: start: 20110101
  10. UNCODEABLE ^INVESTIGATIONAL DRUG^ [Suspect]
     Indication: MULTIPLE MYELOMA
     Dosage: DAILY DOSE 4 MG
     Route: 065
     Dates: start: 20110126, end: 20110202

REACTIONS (3)
  - PNEUMONIA [None]
  - RENAL FAILURE [None]
  - CLOSTRIDIUM DIFFICILE COLITIS [None]
